FAERS Safety Report 4609857-2 (Version None)
Quarter: 2005Q1

REPORT INFORMATION
  Report Type: 
  Country: None (occurrence: None)
  Receive Date: 20050316
  Receipt Date: 20031031
  Transmission Date: 20050727
  Serious: Yes (Hospitalization)
  Sender: FDA-Public Use
  Company Number: BE-JNJFOC-20040303863

PATIENT
  Age: 49 Year
  Sex: Male

DRUGS (3)
  1. CISAPRIDE [Suspect]
     Route: 049
  2. CISAPRIDE [Suspect]
     Route: 049
  3. CISAPRIDE [Suspect]
     Route: 049

REACTIONS (1)
  - NO ADVERSE DRUG EFFECT [None]
